FAERS Safety Report 5468387-9 (Version None)
Quarter: 2007Q3

REPORT INFORMATION
  Report Type: 
  Country: None (occurrence: None)
  Receive Date: 20070926
  Receipt Date: 20070919
  Transmission Date: 20080115
  Serious: Yes (Hospitalization, Other)
  Sender: FDA-Public Use
  Company Number: PHBS2007BR15456

PATIENT
  Age: 10 Month
  Sex: Female
  Weight: 9 kg

DRUGS (9)
  1. TRILEPTAL [Suspect]
     Indication: CONVULSION
     Dosage: 1.5 ML, BID
     Route: 048
     Dates: start: 20070801
  2. TRILEPTAL [Suspect]
     Route: 048
  3. EPILAN [Concomitant]
     Indication: CONVULSION
  4. DEPAKENE [Concomitant]
     Indication: CONVULSION
     Dosage: 2 ML, Q8H
     Route: 048
     Dates: start: 20070301
  5. PHENOBARBITAL TAB [Concomitant]
     Dosage: 1 GTT, QD
  6. VITAMIN D [Concomitant]
     Dosage: 2 GTT, QD
     Route: 048
     Dates: start: 20070501
  7. CALMON [Concomitant]
     Indication: VITAMIN SUPPLEMENTATION
     Dosage: 2 ML, BID
     Dates: start: 20070501
  8. ASCORBIC ACID [Concomitant]
     Indication: INFLUENZA IMMUNISATION
     Dosage: 10 GTT, QD
     Route: 048
     Dates: start: 20070501
  9. NITRAZEPAM [Concomitant]
     Indication: SLEEP DISORDER
     Dosage: 0.5 DF, QD
     Route: 048
     Dates: start: 20070801

REACTIONS (7)
  - CONVULSION [None]
  - FEAR [None]
  - MEMORY IMPAIRMENT [None]
  - MOVEMENT DISORDER [None]
  - POOR VENOUS ACCESS [None]
  - SALIVARY HYPERSECRETION [None]
  - TREMOR [None]
